FAERS Safety Report 25569240 (Version 1)
Quarter: 2025Q3

REPORT INFORMATION
  Report Type: Spontaneous
  Country: EU (occurrence: EU)
  Receive Date: 20250716
  Receipt Date: 20250716
  Transmission Date: 20251021
  Serious: Yes (Death, Other)
  Sender: SANDOZ
  Company Number: EU-MYLANLABS-2019M1025000

PATIENT
  Sex: Female

DRUGS (7)
  1. ANIDULAFUNGIN [Suspect]
     Active Substance: ANIDULAFUNGIN
     Indication: Candida infection
     Route: 065
     Dates: start: 20160220, end: 20160228
  2. ANIDULAFUNGIN [Suspect]
     Active Substance: ANIDULAFUNGIN
     Indication: Antifungal treatment
     Route: 065
     Dates: start: 20160115, end: 20160121
  3. CASPOFUNGIN [Suspect]
     Active Substance: CASPOFUNGIN
     Route: 065
     Dates: start: 20160214, end: 20160220
  4. CASPOFUNGIN [Suspect]
     Active Substance: CASPOFUNGIN
     Indication: Antifungal treatment
     Route: 042
     Dates: start: 20160213, end: 20160213
  5. CASPOFUNGIN [Suspect]
     Active Substance: CASPOFUNGIN
     Indication: Candida infection
     Route: 065
     Dates: start: 20160213, end: 20160213
  6. VORICONAZOLE [Suspect]
     Active Substance: VORICONAZOLE
     Indication: Antifungal prophylaxis
     Route: 042
     Dates: start: 20151208, end: 20160213
  7. VORICONAZOLE [Suspect]
     Active Substance: VORICONAZOLE
     Indication: Candida infection

REACTIONS (4)
  - Multiple-drug resistance [Fatal]
  - Drug resistance [Unknown]
  - Acquired gene mutation [Unknown]
  - Drug ineffective [Unknown]
